FAERS Safety Report 7642807-3 (Version None)
Quarter: 2011Q3

REPORT INFORMATION
  Report Type: 
  Country: None (occurrence: None)
  Receive Date: 20110728
  Receipt Date: 20110721
  Transmission Date: 20111222
  Serious: Yes (Other)
  Sender: FDA-Public Use
  Company Number: US-ABBOTT-11P-163-0840733-00

PATIENT
  Sex: Male
  Weight: 63.56 kg

DRUGS (4)
  1. TRAMADOL HCL [Concomitant]
     Indication: PAIN
  2. HUMIRA [Suspect]
     Dates: start: 20080401, end: 20100301
  3. HUMIRA [Suspect]
     Indication: RHEUMATOID ARTHRITIS
     Dates: start: 20070101, end: 20080101
  4. HUMIRA [Suspect]
     Dates: start: 20100301, end: 20110601

REACTIONS (7)
  - BLISTER [None]
  - ARTHRALGIA [None]
  - RASH [None]
  - ROTATOR CUFF SYNDROME [None]
  - HERPES ZOSTER [None]
  - MUSCULOSKELETAL PAIN [None]
  - MENISCUS LESION [None]
